FAERS Safety Report 4615620-9 (Version None)
Quarter: 2005Q1

REPORT INFORMATION
  Report Type: 
  Country: None (occurrence: None)
  Receive Date: 20050322
  Receipt Date: 20050311
  Transmission Date: 20050727
  Serious: Yes (Other)
  Sender: FDA-Public Use
  Company Number: ES-MERCK-0503ESP00033

PATIENT
  Sex: Female

DRUGS (4)
  1. CANCIDAS [Suspect]
     Indication: CANDIDIASIS
     Route: 042
     Dates: start: 20050301
  2. FLUCONAZOLE [Concomitant]
     Indication: CANDIDIASIS
     Route: 065
  3. AMPHOTERICIN B [Concomitant]
     Indication: CANDIDIASIS
     Route: 065
  4. HEPARIN [Suspect]
     Indication: PROPHYLAXIS
     Route: 065

REACTIONS (5)
  - CREATININE RENAL CLEARANCE DECREASED [None]
  - GINGIVAL BLEEDING [None]
  - HAEMORRHAGE [None]
  - PROTHROMBIN TIME PROLONGED [None]
  - VESSEL PUNCTURE SITE HAEMORRHAGE [None]
